FAERS Safety Report 16660338 (Version 2)
Quarter: 2019Q3

REPORT INFORMATION
  Report Type: Report from Study
  Country: CN (occurrence: CN)
  Receive Date: 20190802
  Receipt Date: 20190819
  Transmission Date: 20191004
  Serious: Yes (Other)
  Sender: FDA-Public Use
  Company Number: CN-AUROBINDO-AUR-APL-2019-045760

PATIENT

DRUGS (5)
  1. MELPHALAN INJECTION [Suspect]
     Active Substance: MELPHALAN
     Dosage: 20 MICROGRAM LEFT EYE
  2. ATROPINE. [Concomitant]
     Active Substance: ATROPINE
     Indication: PUPIL DILATION PROCEDURE
     Dosage: UNK
     Route: 065
  3. MELPHALAN INJECTION [Suspect]
     Active Substance: MELPHALAN
     Indication: RETINOBLASTOMA
     Dosage: UNK, DILUTED  0.1 ML MEPHALAN SOLUTION 20-40MICROGRAM
  4. MELPHALAN INJECTION [Suspect]
     Active Substance: MELPHALAN
     Dosage: 30 MICROGRAM (LEFT EYE)
  5. MELPHALAN INJECTION [Suspect]
     Active Substance: MELPHALAN
     Dosage: 30 MICROGRAM (LEFT EYE)

REACTIONS (4)
  - Chorioretinal atrophy [Unknown]
  - Product use in unapproved indication [Unknown]
  - Retinal pigmentation [Unknown]
  - Product use issue [Unknown]
